FAERS Safety Report 13520660 (Version 4)
Quarter: 2021Q1

REPORT INFORMATION
  Report Type: Spontaneous
  Country: CA (occurrence: CA)
  Receive Date: 20170508
  Receipt Date: 20210319
  Transmission Date: 20210419
  Serious: Yes (Hospitalization)
  Sender: FDA-Public Use
  Company Number: CA-ROCHE-1883578

PATIENT
  Age: 41 Year
  Sex: Female
  Weight: 70 kg

DRUGS (32)
  1. FRAGMIN [Concomitant]
     Active Substance: DALTEPARIN SODIUM
     Dosage: THERAPY DURATION:  2.0 DAY(S)
  2. IMODIUM [Concomitant]
     Active Substance: LOPERAMIDE HYDROCHLORIDE
     Dosage: THERAPY DURATION:  129.0 DAY(S)
  3. TAMIFLU [Concomitant]
     Active Substance: OSELTAMIVIR PHOSPHATE
     Dosage: THERAPY DURATION:  8.0 DAY(S)
  4. TYLENOL [Concomitant]
     Active Substance: ACETAMINOPHEN
     Dosage: THERAPY DURATION: 32.0 DAY(S)
  5. TYLENOL [Concomitant]
     Active Substance: ACETAMINOPHEN
     Dosage: THERAPY DURATION: 5 DAYS
  6. TRASTUZUMAB. [Suspect]
     Active Substance: TRASTUZUMAB
     Route: 042
  7. PERTUZUMAB. [Suspect]
     Active Substance: PERTUZUMAB
     Indication: HER2 POSITIVE BREAST CANCER
     Route: 042
  8. PERTUZUMAB. [Suspect]
     Active Substance: PERTUZUMAB
     Route: 042
  9. CLOXACILLIN [Concomitant]
     Active Substance: CLOXACILLIN
     Dosage: THERAPY DURATION:  6.0 DAY(S)
  10. SODIUM CHLORIDE. [Concomitant]
     Active Substance: SODIUM CHLORIDE
     Dosage: THERAPY DURATION:  2.0 DAY(S)
  11. TYLENOL [Concomitant]
     Active Substance: ACETAMINOPHEN
     Dosage: THERAPY DURATION:  2.0 DAY(S)
  12. DOCETAXEL. [Suspect]
     Active Substance: DOCETAXEL
     Indication: HER2 POSITIVE BREAST CANCER
     Route: 042
  13. XYLOCAINE [Suspect]
     Active Substance: LIDOCAINE HYDROCHLORIDE
     Indication: PRODUCT USED FOR UNKNOWN INDICATION
     Route: 065
  14. CLARITHROMYCIN. [Concomitant]
     Active Substance: CLARITHROMYCIN
     Dosage: THEAPY DURATION:  11.0 DAY(S)
  15. FUCIDIN [Concomitant]
     Active Substance: FUSIDATE SODIUM
     Dosage: THERAPY DURATION:  7.0 DAY(S)
  16. PAMIDRONATE DISODIUM. [Concomitant]
     Active Substance: PAMIDRONATE DISODIUM
  17. TRASTUZUMAB. [Suspect]
     Active Substance: TRASTUZUMAB
     Indication: HER2 POSITIVE BREAST CANCER
     Route: 041
  18. CEFAZOLIN SODIUM. [Concomitant]
     Active Substance: CEFAZOLIN SODIUM
     Dosage: THERAPY DURATION:  3.0 DAY(S)
  19. TYLENOL [Concomitant]
     Active Substance: ACETAMINOPHEN
     Dosage: THERAPY DURATION: 1.0 DAY
  20. POTASSIUM CHLORIDE. [Concomitant]
     Active Substance: POTASSIUM CHLORIDE
     Dosage: THERAPY DURATION: 1 DAY
  21. BENADRYL [Concomitant]
     Active Substance: DIPHENHYDRAMINE HYDROCHLORIDE
     Dosage: THERAPY DURATION:  1.0 DAY(S)
  22. CLINDAMYCIN PHOSPHATE. [Concomitant]
     Active Substance: CLINDAMYCIN PHOSPHATE
     Dosage: THERAPY DURATION:  9.0 DAY(S)
  23. IMODIUM [Concomitant]
     Active Substance: LOPERAMIDE HYDROCHLORIDE
     Dosage: THERAPY DURATION:  121.0 DAY(S)
  24. PANTOLOC [Concomitant]
     Active Substance: PANTOPRAZOLE SODIUM
  25. DOCETAXEL. [Suspect]
     Active Substance: DOCETAXEL
     Indication: BREAST CANCER METASTATIC
     Route: 042
  26. DECADRON [Concomitant]
     Active Substance: DEXAMETHASONE
  27. LEVAQUIN [Concomitant]
     Active Substance: LEVOFLOXACIN
     Dosage: THERAPY DURATION:  8.0 DAY(S)
  28. TYLENOL [Concomitant]
     Active Substance: ACETAMINOPHEN
     Dosage: THERAPY DURATION: 7.0 DAY(S)
  29. XYLOCAINE [Concomitant]
     Active Substance: LIDOCAINE HYDROCHLORIDE
     Indication: ANAESTHESIA
     Dosage: THERAPY DURATION: 1 DAY
  30. FUSIDIC ACID [Concomitant]
     Active Substance: FUSIDIC ACID
  31. LOVENOX [Concomitant]
     Active Substance: ENOXAPARIN SODIUM
     Indication: PROPHYLAXIS
  32. CETIRIZINE [Concomitant]
     Active Substance: CETIRIZINE HYDROCHLORIDE
     Dosage: THERAPY DURATION: 2 DAYS

REACTIONS (4)
  - Colitis microscopic [Recovered/Resolved]
  - Febrile neutropenia [Recovered/Resolved]
  - Clostridium difficile infection [Recovered/Resolved]
  - Diarrhoea [Recovered/Resolved]
